FAERS Safety Report 7536266-9 (Version None)
Quarter: 2011Q2

REPORT INFORMATION
  Report Type: 
  Country: None (occurrence: None)
  Receive Date: 20110609
  Receipt Date: 20110606
  Transmission Date: 20111010
  Serious: Yes (Other)
  Sender: FDA-Public Use
  Company Number: US-SANOFI-AVENTIS-2011SA027679

PATIENT
  Age: 61 Year
  Sex: Male
  Weight: 84.09 kg

DRUGS (4)
  1. WARFARIN SODIUM [Concomitant]
  2. DIOVAN [Concomitant]
  3. MULTAQ [Suspect]
     Indication: ATRIAL FIBRILLATION
     Route: 048
     Dates: start: 20110422
  4. RYTHMOL [Concomitant]
     Dates: end: 20110422

REACTIONS (1)
  - ATRIAL FIBRILLATION [None]
